FAERS Safety Report 4723577-5 (Version None)
Quarter: 2005Q3

REPORT INFORMATION
  Report Type: 
  Country: None (occurrence: None)
  Receive Date: 20050720
  Receipt Date: 20050720
  Transmission Date: 20060218
  Serious: Yes (Hospitalization)
  Sender: FDA-Public Use
  Company Number: None

PATIENT
  Age: 81 Year
  Sex: Male

DRUGS (3)
  1. ENALAPRIL [Suspect]
     Dosage: 10 MG PO BID
     Route: 048
  2. SPIRONOLACTONE [Suspect]
     Dosage: 25 MG PO QD
     Route: 048
  3. CANDESARTAN  16 MG PO QD [Suspect]

REACTIONS (6)
  - ASTHENIA [None]
  - CONFUSIONAL STATE [None]
  - HYPERKALAEMIA [None]
  - HYPOALDOSTERONISM [None]
  - HYPONATRAEMIA [None]
  - ORAL INTAKE REDUCED [None]
